FAERS Safety Report 12250352 (Version 1)
Quarter: 2016Q2

REPORT INFORMATION
  Report Type: Other
  Country: GB (occurrence: CN)
  Receive Date: 20160408
  Receipt Date: 20160408
  Transmission Date: 20160815
  Serious: Yes (Death)
  Sender: FDA-Public Use
  Company Number: CN-CLARIS PHARMASERVICES-1050395

PATIENT
  Age: 58 Year
  Sex: Male
  Weight: 65 kg

DRUGS (6)
  1. ETOMIDATE. [Concomitant]
     Active Substance: ETOMIDATE
     Dates: start: 20131220, end: 20131220
  2. HALOPERIDOL. [Suspect]
     Active Substance: HALOPERIDOL
     Route: 030
     Dates: start: 20131219, end: 20131219
  3. SUCCINYLCHOLINE CHLORIDE. [Concomitant]
     Active Substance: SUCCINYLCHOLINE CHLORIDE
     Dates: start: 20131220, end: 20131220
  4. OLANZAPINE. [Concomitant]
     Active Substance: OLANZAPINE
     Dates: start: 20131219, end: 20131219
  5. SCOPOLAMINE [Concomitant]
     Active Substance: SCOPOLAMINE
     Dates: start: 20131219, end: 20131219
  6. ATROPINE. [Concomitant]
     Active Substance: ATROPINE
     Dates: start: 20131220, end: 20131220

REACTIONS (2)
  - Death [Fatal]
  - Cardiac arrest [Fatal]
